FAERS Safety Report 10170541 (Version 1)
Quarter: 2014Q2

REPORT INFORMATION
  Report Type: Spontaneous
  Country: US (occurrence: US)
  Receive Date: 20140513
  Receipt Date: 20140513
  Transmission Date: 20141212
  Serious: Yes (Hospitalization, Other)
  Sender: FDA-Public Use
  Company Number: US-RB-067159-14

PATIENT
  Age: 0 Year
  Sex: Female

DRUGS (2)
  1. SUBOXONE FILM [Suspect]
     Dosage: SUBOXONE FILM; MOTHER WAS TAKING 1/2 STRIP DAILY, FURTHER DOSING DETAILS UNKNOWN
     Route: 064
     Dates: start: 201205, end: 20120601
  2. SUBOXONE FILM [Suspect]
     Indication: PRODUCT USED FOR UNKNOWN INDICATION
     Dosage: SUBOXONE FILM; MOTHER WAS TAKING 1/4 STRIP DAILY, SELF TAPERING, FURTHER DOSING DETAILS UNKNOWN
     Route: 064
     Dates: start: 20120602, end: 20130127

REACTIONS (4)
  - Foetal exposure during pregnancy [Recovered/Resolved]
  - Premature baby [Recovered/Resolved]
  - Jaundice neonatal [Recovered/Resolved]
  - Drug withdrawal syndrome neonatal [Recovered/Resolved]
